FAERS Safety Report 18365779 (Version 1)
Quarter: 2020Q4

REPORT INFORMATION
  Report Type: Spontaneous
  Country: US (occurrence: US)
  Receive Date: 20201009
  Receipt Date: 20201009
  Transmission Date: 20210114
  Serious: No
  Sender: FDA-Public Use
  Company Number: US-TERSERA THERAPEUTICS LLC-2020TRS001760

PATIENT

DRUGS (1)
  1. VARUBI [Suspect]
     Active Substance: ROLAPITANT
     Indication: BREAST CANCER FEMALE
     Dosage: 180 MG (2 TABLETS OF 90 MG BY MOUTH 1-2 HOURS PRIOR TO CHEMO EVERY 3 WEEKS)
     Route: 048
     Dates: start: 20200602

REACTIONS (2)
  - Dyspepsia [Unknown]
  - White blood cell count decreased [Unknown]

NARRATIVE: CASE EVENT DATE: 2020
